FAERS Safety Report 7740206-7 (Version None)
Quarter: 2011Q3

REPORT INFORMATION
  Report Type: 
  Country: None (occurrence: None)
  Receive Date: 20110909
  Receipt Date: 20110909
  Transmission Date: 20111222
  Serious: Yes (Hospitalization)
  Sender: FDA-Public Use
  Company Number: None

PATIENT
  Sex: Female
  Weight: 127 kg

DRUGS (1)
  1. DAPTOMYCIN [Suspect]
     Route: 042

REACTIONS (2)
  - OEDEMA PERIPHERAL [None]
  - RHABDOMYOLYSIS [None]
